FAERS Safety Report 22336602 (Version 4)
Quarter: 2023Q4

REPORT INFORMATION
  Report Type: Spontaneous
  Country: CA (occurrence: CA)
  Receive Date: 20230518
  Receipt Date: 20231208
  Transmission Date: 20240110
  Serious: Yes (Other)
  Sender: FDA-Public Use
  Company Number: CA-CELLTRION INC.-2022CA018720

PATIENT

DRUGS (13)
  1. INFLECTRA [Suspect]
     Active Substance: INFLIXIMAB-DYYB
     Indication: Crohn^s disease
     Dosage: 5 MG/KG (WEEK 0, 2, 6 AND THEN EVERY 8 WEEKS)
     Route: 042
     Dates: start: 20220901, end: 20220901
  2. INFLECTRA [Suspect]
     Active Substance: INFLIXIMAB-DYYB
     Dosage: 5 MG/KG (WEEK 0, 2, 6 AND THEN EVERY 8 WEEKS)
     Route: 042
     Dates: start: 20220901, end: 20230413
  3. INFLECTRA [Suspect]
     Active Substance: INFLIXIMAB-DYYB
     Dosage: 5 MG/KG (WEEK 0, 2, 6 AND THEN EVERY 8 WEEKS)
     Route: 042
     Dates: start: 20220915
  4. INFLECTRA [Suspect]
     Active Substance: INFLIXIMAB-DYYB
     Dosage: UNK (WEEK 0, 2, 6 AND THEN EVERY 8 WEEKS)
     Route: 042
     Dates: start: 20221025
  5. INFLECTRA [Suspect]
     Active Substance: INFLIXIMAB-DYYB
     Dosage: UNK (WEEK 0, 2, 6 AND THEN EVERY 8 WEEKS)
     Route: 042
     Dates: start: 20221222
  6. INFLECTRA [Suspect]
     Active Substance: INFLIXIMAB-DYYB
     Dosage: 5 MG/KG (WEEK 0, 2, 6 AND THEN EVERY 8 WEEKS)
     Route: 042
     Dates: start: 20230413
  7. INFLECTRA [Suspect]
     Active Substance: INFLIXIMAB-DYYB
     Dosage: 730 MG(10MG/KG)  WEEK 0 RE-INDUCTION (REINDUCTION W0,2,6 THEN Q6 WEEKS)
     Route: 042
     Dates: start: 20230504
  8. INFLECTRA [Suspect]
     Active Substance: INFLIXIMAB-DYYB
     Dosage: 730 MG (10MG/KG)  WEEK 0 RE-INDUCTION (REINDUCTION W0,2,6 THEN Q6 WEEKS)
     Route: 042
     Dates: start: 20230504
  9. INFLECTRA [Suspect]
     Active Substance: INFLIXIMAB-DYYB
     Dosage: 10 MG/KG , REINDUCTION W0,2,6 THEN Q6 WEEKS
     Route: 042
     Dates: start: 20230907
  10. INFLECTRA [Suspect]
     Active Substance: INFLIXIMAB-DYYB
     Dosage: 740 MG (10MG/KG) EVERY 6 WEEKS
     Route: 042
     Dates: start: 20231017
  11. INFLECTRA [Suspect]
     Active Substance: INFLIXIMAB-DYYB
     Dosage: 750 MG, AFTER 6 WEEKS
     Route: 042
     Dates: start: 20231130
  12. MESALAMINE [Concomitant]
     Active Substance: MESALAMINE
     Dosage: 2 G
     Route: 065
  13. MESALAMINE [Concomitant]
     Active Substance: MESALAMINE
     Dosage: 1 DF, DOSAGE NOT AVAILABLE
     Route: 065

REACTIONS (6)
  - Sensory disturbance [Unknown]
  - Anal fissure [Recovered/Resolved]
  - Fistula [Recovered/Resolved]
  - Erythema [Recovered/Resolved]
  - Off label use [Unknown]
  - Inappropriate schedule of product administration [Unknown]

NARRATIVE: CASE EVENT DATE: 20221025
